FAERS Safety Report 10366647 (Version 2)
Quarter: 2014Q3

REPORT INFORMATION
  Report Type: Report from Study
  Country: JP (occurrence: JP)
  Receive Date: 20140806
  Receipt Date: 20140806
  Transmission Date: 20150326
  Serious: Yes (Hospitalization)
  Sender: FDA-Public Use
  Company Number: JP-009507513-1307JPN004022

PATIENT
  Age: 70 Year
  Sex: Male

DRUGS (22)
  1. PREDNISOLONE. [Suspect]
     Active Substance: PREDNISOLONE
     Dosage: 4 MG, QD
     Dates: start: 20121115, end: 20121227
  2. VORINOSTAT-MYCOSIS FUNGOIDES [Suspect]
     Active Substance: VORINOSTAT
     Dosage: 300 MG, 6 CONSECUTIVE DAYS TREATMENT AND 1 DAY OFF PER WEEK
     Route: 048
     Dates: start: 20120508
  3. ALLELOCK [Concomitant]
     Active Substance: OLOPATADINE HYDROCHLORIDE
     Indication: MYCOSIS FUNGOIDES
     Dosage: 10 MG, BID
     Route: 048
     Dates: start: 20120215
  4. VORINOSTAT-MYCOSIS FUNGOIDES [Suspect]
     Active Substance: VORINOSTAT
     Indication: MYCOSIS FUNGOIDES
     Dosage: 300 MG, QD, CONCENTRATION 100 MG
     Route: 048
     Dates: start: 20120125, end: 20120301
  5. PREDNISOLONE. [Suspect]
     Active Substance: PREDNISOLONE
     Dosage: 3 MG, QD
     Route: 048
     Dates: start: 20121227
  6. TALION (BEPOTASTINE BESYLATE) [Concomitant]
     Active Substance: BEPOTASTINE
     Indication: MYCOSIS FUNGOIDES
     Dosage: 20 MG, BID
     Route: 048
     Dates: start: 20110421
  7. REMICUT [Concomitant]
     Indication: MYCOSIS FUNGOIDES
     Dosage: 2 MG, QD
     Route: 048
     Dates: start: 20120215, end: 20120706
  8. PROMAC (POLAPREZINC) [Concomitant]
     Active Substance: POLAPREZINC
     Indication: GASTRIC ULCER
     Dosage: 75 MG, BID
     Route: 048
     Dates: start: 20120509
  9. BONALFA [Concomitant]
     Indication: MYCOSIS FUNGOIDES
     Route: 061
  10. METHOTREXATE [Concomitant]
     Active Substance: METHOTREXATE
     Indication: MYCOSIS FUNGOIDES
     Dosage: 2.5 MG X 2/DAY/WEEK DAILY DOSE UNKNOWN
     Route: 048
     Dates: start: 20110321
  11. MYSER (DIFLUPREDNATE) [Concomitant]
     Active Substance: DIFLUPREDNATE
     Indication: MYCOSIS FUNGOIDES
     Dosage: DAILY DOSAGE UNKNOWN
     Route: 061
     Dates: start: 20100610
  12. JANUVIA [Concomitant]
     Active Substance: SITAGLIPTIN PHOSPHATE
     Indication: DIABETES MELLITUS
     Dosage: 50 MG, QD
     Route: 048
     Dates: start: 20120214
  13. PREDNISOLONE. [Suspect]
     Active Substance: PREDNISOLONE
     Dosage: 5 MG, QD
     Route: 048
     Dates: start: 20121004, end: 20121115
  14. LOCOID [Concomitant]
     Active Substance: HYDROCORTISONE BUTYRATE
     Indication: MYCOSIS FUNGOIDES
     Route: 061
  15. LIVALO [Concomitant]
     Active Substance: PITAVASTATIN CALCIUM
     Indication: HYPERCHOLESTEROLAEMIA
     Dosage: 2 MG, QD
     Route: 048
  16. VORINOSTAT-MYCOSIS FUNGOIDES [Suspect]
     Active Substance: VORINOSTAT
     Dosage: 400 MG, QD
     Route: 048
     Dates: start: 20120110, end: 20120120
  17. VORINOSTAT-MYCOSIS FUNGOIDES [Suspect]
     Active Substance: VORINOSTAT
     Dosage: 300 MG, QD
     Route: 048
     Dates: start: 20120307, end: 20120321
  18. VORINOSTAT-MYCOSIS FUNGOIDES [Suspect]
     Active Substance: VORINOSTAT
     Dosage: 300 MG, 5 CONSECUTIVE DAYS TREATMENT 2 DAYS OFF PER WEEK
     Route: 048
     Dates: start: 20120322, end: 20120507
  19. PREDNISOLONE. [Suspect]
     Active Substance: PREDNISOLONE
     Dosage: 5 MG, QD
     Route: 048
     Dates: start: 20100715
  20. BASEN [Concomitant]
     Active Substance: VOGLIBOSE
     Indication: DIABETES MELLITUS
     Dosage: 0.3 MG, BID
     Route: 048
     Dates: start: 20120214
  21. PREDNISOLONE. [Suspect]
     Active Substance: PREDNISOLONE
     Indication: MYCOSIS FUNGOIDES
     Dosage: 2.5 MG, QD
     Route: 048
     Dates: start: 20120215, end: 20121004
  22. ANTEBATE [Concomitant]
     Active Substance: BETAMETHASONE DIPROPIONATE
     Indication: MYCOSIS FUNGOIDES
     Dosage: DAILY DOSE UNKNOWN
     Route: 061

REACTIONS (6)
  - Platelet count decreased [Recovering/Resolving]
  - Eosinophilic cellulitis [Recovering/Resolving]
  - Herpes zoster [Recovering/Resolving]
  - Platelet count decreased [Recovering/Resolving]
  - Dysgeusia [Not Recovered/Not Resolved]
  - Platelet count decreased [Recovering/Resolving]

NARRATIVE: CASE EVENT DATE: 20120120
